FAERS Safety Report 9647135 (Version 2)
Quarter: 2013Q4

REPORT INFORMATION
  Report Type: Spontaneous
  Country: US (occurrence: US)
  Receive Date: 20131027
  Receipt Date: 20131027
  Transmission Date: 20140711
  Serious: No
  Sender: FDA-Public Use
  Company Number: US-PURDUE-USA-2013-0103978

PATIENT
  Age: 45 Year
  Sex: Female

DRUGS (5)
  1. OXYCONTIN (NDA 22-272) [Suspect]
     Indication: ARTHRALGIA
     Dosage: 10 MG, BID
     Route: 048
     Dates: start: 20130604, end: 20130606
  2. OXYCONTIN (NDA 22-272) [Suspect]
     Indication: PROCEDURAL PAIN
  3. ARMOUR THYROID [Concomitant]
     Indication: THYROID DISORDER
     Dosage: 75 MG, 3/WEEK
     Route: 048
  4. ARMOUR THYROID [Concomitant]
     Dosage: 90 MG, 4 DAY/WEEK
     Route: 048
  5. OXYCODONE HCL CR TABLETS (SIMILAR TO NDA 22-272) [Concomitant]
     Indication: PAIN
     Dosage: 5/325 MG, PRN
     Route: 048
     Dates: start: 20130604, end: 20130606

REACTIONS (9)
  - Cyanosis [Recovered/Resolved]
  - Lacrimation increased [Recovered/Resolved]
  - Pallor [Recovered/Resolved]
  - Palpitations [Recovered/Resolved]
  - Malaise [Recovered/Resolved]
  - Dyspnoea [Recovered/Resolved]
  - Pruritus generalised [Recovered/Resolved]
  - Headache [Recovered/Resolved]
  - Insomnia [Recovered/Resolved]
